FAERS Safety Report 8326917-3 (Version None)
Quarter: 2012Q2

REPORT INFORMATION
  Report Type: 
  Country: None (occurrence: None)
  Receive Date: 20120501
  Receipt Date: 20120418
  Transmission Date: 20120825
  Serious: Yes (Hospitalization)
  Sender: FDA-Public Use
  Company Number: TN-MYLANLABS-2012S1008315

PATIENT
  Age: 33 Year
  Sex: Female

DRUGS (3)
  1. HYDROXYZINE [Suspect]
     Indication: PSORIASIS
     Route: 048
     Dates: start: 20090601
  2. VASELINE /00473501/ [Concomitant]
     Indication: PSORIASIS
     Route: 065
     Dates: start: 20090601
  3. BETAMETHASONE [Concomitant]
     Indication: PSORIASIS
     Route: 065
     Dates: start: 20090601

REACTIONS (3)
  - PYREXIA [None]
  - DERMATITIS EXFOLIATIVE [None]
  - PRURITUS [None]
